FAERS Safety Report 16334570 (Version 1)
Quarter: 2019Q2

REPORT INFORMATION
  Report Type: Spontaneous
  Country: US (occurrence: US)
  Receive Date: 20190520
  Receipt Date: 20190520
  Transmission Date: 20190711
  Serious: Yes (Other)
  Sender: FDA-Public Use
  Company Number: US-PFIZER INC-2019207871

PATIENT
  Age: 38 Year
  Sex: Female
  Weight: 81.65 kg

DRUGS (2)
  1. LYRICA [Suspect]
     Active Substance: PREGABALIN
     Indication: COMPLEX REGIONAL PAIN SYNDROME
     Dosage: 300 MG, 2X/DAY
     Dates: start: 2003, end: 2009
  2. LYRICA [Suspect]
     Active Substance: PREGABALIN
     Dosage: 300 MG, 2X/DAY
     Dates: start: 201706

REACTIONS (8)
  - Foot fracture [Recovered/Resolved with Sequelae]
  - Ligament sprain [Recovered/Resolved with Sequelae]
  - Sciatica [Unknown]
  - Off label use [Unknown]
  - Fall [Recovered/Resolved with Sequelae]
  - Condition aggravated [Unknown]
  - Product use in unapproved indication [Unknown]
  - Complex regional pain syndrome [Not Recovered/Not Resolved]

NARRATIVE: CASE EVENT DATE: 201811
